FAERS Safety Report 6874486-7 (Version None)
Quarter: 2010Q3

REPORT INFORMATION
  Report Type: 
  Country: None (occurrence: None)
  Receive Date: 20100723
  Receipt Date: 20100723
  Transmission Date: 20110219
  Serious: Yes (Life-Threatening, Hospitalization, Other)
  Sender: FDA-Public Use
  Company Number: None

PATIENT
  Sex: Female
  Weight: 84 kg

DRUGS (1)
  1. BYETTA [Suspect]
     Indication: DIABETES MELLITUS
     Dosage: 5MCG BID SQ ABOUT 2 YEARS FROM 2006
     Route: 058

REACTIONS (4)
  - ADENOCARCINOMA PANCREAS [None]
  - ASCITES [None]
  - HEPATIC FAILURE [None]
  - RENAL FAILURE [None]
